FAERS Safety Report 20824956 (Version 1)
Quarter: 2022Q2

REPORT INFORMATION
  Report Type: Other
  Country: CR (occurrence: None)
  Receive Date: 20220513
  Receipt Date: 20220513
  Transmission Date: 20220721
  Serious: Yes (Other)
  Sender: FDA-Public Use
  Company Number: CR-ROCHE-3091973

PATIENT
  Age: 72 Year
  Sex: Female

DRUGS (2)
  1. TECENTRIQ [Suspect]
     Active Substance: ATEZOLIZUMAB
     Indication: Hepatocellular carcinoma
     Dosage: LAST INFUSION WAS ON 18/OCT/2021
     Route: 041
     Dates: start: 20210115
  2. AVASTIN [Suspect]
     Active Substance: BEVACIZUMAB
     Indication: Hepatocellular carcinoma
     Dosage: LAST INFUSION WAS ON 18/OCT/2021
     Route: 065
     Dates: start: 20210115

REACTIONS (1)
  - Ascites [Unknown]
